FAERS Safety Report 6268934-3 (Version None)
Quarter: 2009Q3

REPORT INFORMATION
  Report Type: 
  Country: None (occurrence: None)
  Receive Date: 20090715
  Receipt Date: 20090706
  Transmission Date: 20100115
  Serious: Yes (Hospitalization)
  Sender: FDA-Public Use
  Company Number: FR-ASTRAZENECA-2009SE04148

PATIENT
  Age: 30263 Day
  Sex: Female

DRUGS (10)
  1. ZESTRIL [Suspect]
     Route: 048
     Dates: end: 20080503
  2. ALDACTONE [Suspect]
     Route: 048
     Dates: end: 20080503
  3. ALDACTAZINE [Suspect]
     Route: 048
     Dates: end: 20080503
  4. DIFFU K [Suspect]
     Route: 048
     Dates: end: 20080503
  5. MOPRAL [Concomitant]
  6. LASIX [Concomitant]
  7. IKOREL [Concomitant]
  8. KARDEGIC [Concomitant]
  9. ZOCOR [Concomitant]
  10. DETENSIEL [Concomitant]

REACTIONS (4)
  - BUNDLE BRANCH BLOCK [None]
  - DIARRHOEA [None]
  - HYPERKALAEMIA [None]
  - RENAL FAILURE ACUTE [None]
